FAERS Safety Report 15800555 (Version 1)
Quarter: 2019Q1

REPORT INFORMATION
  Report Type: Spontaneous
  Country: US (occurrence: US)
  Receive Date: 20190108
  Receipt Date: 20190108
  Transmission Date: 20190417
  Serious: No
  Sender: FDA-Public Use
  Company Number: US-009507513-1812USA007464

PATIENT
  Age: 64 Year
  Sex: Female

DRUGS (3)
  1. REMERON [Suspect]
     Active Substance: MIRTAZAPINE
     Indication: MYCOSIS FUNGOIDES
  2. NALTREXONE [Concomitant]
     Active Substance: NALTREXONE
     Indication: MYCOSIS FUNGOIDES
  3. PRALATREXATE [Concomitant]
     Active Substance: PRALATREXATE
     Indication: MYCOSIS FUNGOIDES

REACTIONS (1)
  - Off label use [Unknown]
